FAERS Safety Report 11719643 (Version 4)
Quarter: 2016Q1

REPORT INFORMATION
  Report Type: Spontaneous
  Country: PE (occurrence: PE)
  Receive Date: 20151110
  Receipt Date: 20160203
  Transmission Date: 20160525
  Serious: Yes (Hospitalization)
  Sender: FDA-Public Use
  Company Number: PE-NOVOPROD-469420

PATIENT
  Age: 37 Year
  Sex: Male
  Weight: 115 kg

DRUGS (2)
  1. VICTOZA [Suspect]
     Active Substance: LIRAGLUTIDE
     Dosage: UNK
     Route: 065
  2. VICTOZA [Suspect]
     Active Substance: LIRAGLUTIDE
     Indication: TYPE 2 DIABETES MELLITUS
     Dosage: 1.8 MG, QD
     Route: 065

REACTIONS (2)
  - Arrhythmia [Recovered/Resolved]
  - Hepatic steatosis [Recovered/Resolved]
